FAERS Safety Report 14543946 (Version 1)
Quarter: 2018Q1

REPORT INFORMATION
  Report Type: Spontaneous
  Country: FR (occurrence: FR)
  Receive Date: 20180216
  Receipt Date: 20180216
  Transmission Date: 20180509
  Serious: Yes (Disabling)
  Sender: FDA-Public Use
  Company Number: FR-BIOMARINAP-FR-2018-117037

PATIENT
  Age: 47 Year
  Sex: Female
  Weight: 42 kg

DRUGS (1)
  1. NAGLAZYME [Suspect]
     Active Substance: GALSULFASE
     Indication: MUCOPOLYSACCHARIDOSIS VI
     Dosage: UNK UNK, QW
     Route: 042

REACTIONS (2)
  - Decreased appetite [Recovering/Resolving]
  - Hepatocellular injury [Recovering/Resolving]
